FAERS Safety Report 9288661 (Version 1)
Quarter: 2013Q2

REPORT INFORMATION
  Report Type: Report from Study
  Country: BR (occurrence: BR)
  Receive Date: 20130514
  Receipt Date: 20130514
  Transmission Date: 20140414
  Serious: Yes (Other)
  Sender: FDA-Public Use
  Company Number: PHHY2013BR046925

PATIENT
  Age: 8 Year
  Sex: Male

DRUGS (1)
  1. RITALIN LA [Suspect]
     Indication: ATTENTION DEFICIT/HYPERACTIVITY DISORDER
     Dosage: 1 DF, UNK
     Route: 048

REACTIONS (5)
  - Pyramidal tract syndrome [Unknown]
  - Neck pain [Unknown]
  - Speech disorder [Unknown]
  - Trismus [Unknown]
  - Tongue disorder [Unknown]
